FAERS Safety Report 16778981 (Version 1)
Quarter: 2019Q3

REPORT INFORMATION
  Report Type: Spontaneous
  Country: GB (occurrence: GB)
  Receive Date: 20190906
  Receipt Date: 20190906
  Transmission Date: 20191005
  Serious: Yes (Disabling, Other)
  Sender: FDA-Public Use
  Company Number: GB-009507513-1908GBR010427

PATIENT
  Age: 50 Year
  Sex: Female
  Weight: 64 kg

DRUGS (48)
  1. SIMVASTATIN. [Concomitant]
     Active Substance: SIMVASTATIN
     Indication: MYALGIA
     Dosage: UNK
     Dates: start: 2003
  2. ESTROGENS, CONJUGATED [Concomitant]
     Active Substance: ESTROGENS, CONJUGATED
     Dosage: UNK
  3. NORETHINDRONE ACETATE. [Concomitant]
     Active Substance: NORETHINDRONE ACETATE
     Indication: CHEST PAIN
     Dosage: 2 DOSAGE FORM, QD
  4. NORETHINDRONE ACETATE. [Concomitant]
     Active Substance: NORETHINDRONE ACETATE
     Dosage: UNK
  5. MEDROXYPROGESTERONE ACETATE. [Concomitant]
     Active Substance: MEDROXYPROGESTERONE ACETATE
     Dosage: UNK
  6. POTASSIUM BICARBONATE. [Concomitant]
     Active Substance: POTASSIUM BICARBONATE
     Dosage: UNK
  7. SIMVASTATIN. [Suspect]
     Active Substance: SIMVASTATIN
     Indication: FATIGUE
     Dosage: UNK
  8. NORETHINDRONE ACETATE. [Concomitant]
     Active Substance: NORETHINDRONE ACETATE
     Indication: NAUSEA
     Dosage: UNK
  9. MEDROXYPROGESTERONE ACETATE. [Concomitant]
     Active Substance: MEDROXYPROGESTERONE ACETATE
     Dosage: UNK
  10. SODIUM ALGINATE [Concomitant]
     Active Substance: SODIUM ALGINATE
     Dosage: UNK
  11. ESTRADIOL. [Concomitant]
     Active Substance: ESTRADIOL
     Indication: PANIC ATTACK
     Dosage: UNK
  12. SIMVASTATIN. [Suspect]
     Active Substance: SIMVASTATIN
     Indication: ENDOSCOPY
     Dosage: 10 MILLIGRAM
     Dates: start: 2003
  13. LIPITOR [Suspect]
     Active Substance: ATORVASTATIN CALCIUM
     Dosage: 40 MILLIGRAM
     Dates: start: 20030310, end: 200412
  14. LIPITOR [Suspect]
     Active Substance: ATORVASTATIN CALCIUM
     Dosage: 10 MILLIGRAM
     Dates: start: 19981113
  15. SIMVASTATIN. [Concomitant]
     Active Substance: SIMVASTATIN
     Indication: MEMORY IMPAIRMENT
     Dosage: UNK
     Dates: start: 2003
  16. ESTROGENS, CONJUGATED [Concomitant]
     Active Substance: ESTROGENS, CONJUGATED
     Dosage: UNK
  17. ESTROGENS, CONJUGATED [Concomitant]
     Active Substance: ESTROGENS, CONJUGATED
     Dosage: UNK
  18. NORETHINDRONE ACETATE. [Concomitant]
     Active Substance: NORETHINDRONE ACETATE
     Indication: ANXIETY
     Dosage: UNK
  19. ESTRADIOL. [Concomitant]
     Active Substance: ESTRADIOL
     Indication: FEELING HOT
     Dosage: UNK
  20. ESTRADIOL. [Concomitant]
     Active Substance: ESTRADIOL
     Dosage: UNK
  21. FLUOXETINE [Concomitant]
     Active Substance: FLUOXETINE HYDROCHLORIDE
     Dosage: UNK
  22. LIPITOR [Suspect]
     Active Substance: ATORVASTATIN CALCIUM
     Indication: HYPERCHOLESTEROLAEMIA
     Dosage: 10 MILLIGRAM
     Dates: end: 20061128
  23. SIMVASTATIN. [Concomitant]
     Active Substance: SIMVASTATIN
     Indication: ENDOSCOPY
     Dosage: UNK
     Dates: start: 2003
  24. NORETHINDRONE ACETATE. [Concomitant]
     Active Substance: NORETHINDRONE ACETATE
     Indication: FEELING HOT
     Dosage: UNK
  25. MEDROXYPROGESTERONE ACETATE. [Concomitant]
     Active Substance: MEDROXYPROGESTERONE ACETATE
     Dosage: UNK
  26. ESTRADIOL. [Concomitant]
     Active Substance: ESTRADIOL
     Dosage: 2 DOSAGE FORM  PER DAY
  27. ROSUVASTATIN. [Concomitant]
     Active Substance: ROSUVASTATIN
     Indication: MYALGIA
     Dosage: UNK
  28. SIMVASTATIN. [Concomitant]
     Active Substance: SIMVASTATIN
     Indication: PAIN IN EXTREMITY
     Dosage: UNK
     Dates: start: 2003
  29. SIMVASTATIN. [Concomitant]
     Active Substance: SIMVASTATIN
     Indication: FATIGUE
     Dosage: UNK
     Dates: start: 2003
  30. ESTROGENS, CONJUGATED [Concomitant]
     Active Substance: ESTROGENS, CONJUGATED
     Dosage: UNK
  31. PRAVASTATIN. [Concomitant]
     Active Substance: PRAVASTATIN
     Dosage: UNK
  32. ESTRADIOL. [Concomitant]
     Active Substance: ESTRADIOL
     Indication: NAUSEA
     Dosage: UNK
  33. ROSUVASTATIN. [Concomitant]
     Active Substance: ROSUVASTATIN
     Dosage: UNK
  34. PRAVASTATIN. [Suspect]
     Active Substance: PRAVASTATIN
     Dosage: 10 MILLIGRAM
  35. NORETHINDRONE ACETATE. [Concomitant]
     Active Substance: NORETHINDRONE ACETATE
     Dosage: UNK UNK, QW
  36. ESTRADIOL. [Concomitant]
     Active Substance: ESTRADIOL
     Indication: CHEST PAIN
     Dosage: UNK
  37. ESTRADIOL. [Concomitant]
     Active Substance: ESTRADIOL
     Dosage: UNK
  38. FLUOXETINE [Concomitant]
     Active Substance: FLUOXETINE HYDROCHLORIDE
     Dosage: UNK
  39. SIMVASTATIN. [Suspect]
     Active Substance: SIMVASTATIN
     Indication: MEMORY IMPAIRMENT
     Dosage: UNK
  40. SIMVASTATIN. [Suspect]
     Active Substance: SIMVASTATIN
     Indication: MYALGIA
     Dosage: UNK
  41. NORETHINDRONE ACETATE. [Concomitant]
     Active Substance: NORETHINDRONE ACETATE
     Indication: PANIC ATTACK
     Dosage: UNK
  42. SODIUM ALGINATE [Concomitant]
     Active Substance: SODIUM ALGINATE
  43. POTASSIUM BICARBONATE. [Concomitant]
     Active Substance: POTASSIUM BICARBONATE
  44. POTASSIUM BICARBONATE. [Concomitant]
     Active Substance: POTASSIUM BICARBONATE
     Dosage: UNK
  45. SIMVASTATIN. [Suspect]
     Active Substance: SIMVASTATIN
     Indication: PAIN IN EXTREMITY
     Dosage: UNK
  46. LANSOPRAZOLE. [Concomitant]
     Active Substance: LANSOPRAZOLE
     Indication: DYSPEPSIA
     Dosage: UNK
  47. LANSOPRAZOLE. [Concomitant]
     Active Substance: LANSOPRAZOLE
     Dosage: UNK
  48. ESTRADIOL. [Concomitant]
     Active Substance: ESTRADIOL
     Indication: ANXIETY
     Dosage: 2 WEEKS

REACTIONS (37)
  - Photosensitivity reaction [Unknown]
  - Joint injury [Unknown]
  - Arthritis [Unknown]
  - Road traffic accident [Unknown]
  - Drug ineffective [Unknown]
  - Irritable bowel syndrome [Unknown]
  - Urticaria [Unknown]
  - Gastroenteritis [Recovered/Resolved]
  - Viral infection [Unknown]
  - Pain in extremity [Unknown]
  - Dyspepsia [Unknown]
  - Post viral fatigue syndrome [Unknown]
  - Memory impairment [Unknown]
  - Anxiety [Unknown]
  - Angioedema [Unknown]
  - Asthenia [Unknown]
  - Menopausal symptoms [Unknown]
  - Salivary hypersecretion [Unknown]
  - Muscle injury [Recovering/Resolving]
  - Unevaluable event [Unknown]
  - Influenza like illness [Unknown]
  - Muscle atrophy [Unknown]
  - Gastric ulcer [Unknown]
  - Hypersensitivity [Unknown]
  - Upper respiratory tract infection [Unknown]
  - Depression [Unknown]
  - Dysgeusia [Unknown]
  - Conjunctivitis [Unknown]
  - Blepharitis [Unknown]
  - Musculoskeletal pain [Unknown]
  - Abdominal pain upper [Unknown]
  - Dry mouth [Unknown]
  - Myalgia [Unknown]
  - Arthralgia [Not Recovered/Not Resolved]
  - Fatigue [Unknown]
  - Restless legs syndrome [Unknown]
  - Blood cholesterol increased [Unknown]

NARRATIVE: CASE EVENT DATE: 199904
